FAERS Safety Report 9528083 (Version 1)
Quarter: 2013Q1

REPORT INFORMATION
  Report Type: Spontaneous
  Country: US (occurrence: None)
  Receive Date: 20130313
  Receipt Date: 20130313
  Transmission Date: 20140127
  Serious: No
  Sender: FDA-Public Use
  Company Number: 1000029568

PATIENT
  Age: 46 Year
  Sex: Female

DRUGS (5)
  1. SAVELLA [Suspect]
     Indication: FIBROMYALGIA
     Dosage: 12.5 MG (12.5 MG,1 IN 1 D)
     Dates: start: 20120116, end: 20120116
  2. SAVELLA [Suspect]
     Indication: FIBROMYALGIA
     Dosage: 50 MG (50 MG,1 IN 1 D)
     Dates: start: 2012, end: 20120211
  3. PLAQUENIL (HYDROXYCHLOROQUINE) (HYDROXYCHLOROQUINE) [Concomitant]
  4. SYNTHROID [Concomitant]
  5. CELEBREX (CELECOXIB) (ELECOXIB) [Concomitant]

REACTIONS (5)
  - Hypoaesthesia [None]
  - Chills [None]
  - Nausea [None]
  - Diarrhoea [None]
  - Vomiting [None]
